FAERS Safety Report 21154585 (Version 3)
Quarter: 2022Q4

REPORT INFORMATION
  Report Type: Spontaneous
  Country: US (occurrence: US)
  Receive Date: 20220801
  Receipt Date: 20221109
  Transmission Date: 20230112
  Serious: No
  Sender: FDA-Public Use
  Company Number: US-BRISTOL-MYERS SQUIBB COMPANY-BMS-2022-001940

PATIENT
  Age: 71 Year
  Sex: Female
  Weight: 33.11 kg

DRUGS (2)
  1. REVLIMID [Suspect]
     Active Substance: LENALIDOMIDE
     Indication: Plasma cell myeloma
     Dosage: FREQ: D1-21 Q28 DAYS
     Route: 048
     Dates: start: 20211025
  2. REVLIMID [Suspect]
     Active Substance: LENALIDOMIDE
     Dosage: FREQ - DAILY FOR 28 DAYS (28 DAY CYCLE)
     Route: 048
     Dates: start: 20221007

REACTIONS (6)
  - Nasopharyngitis [Unknown]
  - Fatigue [Unknown]
  - Diarrhoea [Recovered/Resolved]
  - Constipation [Recovered/Resolved]
  - Respiratory tract congestion [Unknown]
  - White blood cell count decreased [Unknown]
